FAERS Safety Report 9109720 (Version 3)
Quarter: 2013Q4

REPORT INFORMATION
  Report Type: Report from Study
  Country: FR (occurrence: FR)
  Receive Date: 20130222
  Receipt Date: 20131206
  Transmission Date: 20140711
  Serious: Yes (Hospitalization, Congenital Anomaly, Other)
  Sender: FDA-Public Use
  Company Number: FR-PFIZER INC-2012223941

PATIENT
  Sex: Female
  Weight: 2.18 kg

DRUGS (11)
  1. RAPAMUNE [Suspect]
     Indication: IMMUNOSUPPRESSANT DRUG THERAPY
     Dosage: 2 MG, DAILY
     Route: 064
     Dates: start: 20100222, end: 20120314
  2. RAPAMUNE [Suspect]
     Indication: PROPHYLAXIS AGAINST TRANSPLANT REJECTION
  3. CELLCEPT [Suspect]
     Indication: IMMUNOSUPPRESSANT DRUG THERAPY
     Dosage: 250 MG, 2X/DAY
     Route: 064
     Dates: start: 20091219, end: 20130325
  4. CELLCEPT [Suspect]
     Indication: PROPHYLAXIS AGAINST TRANSPLANT REJECTION
  5. APROVEL [Suspect]
     Dosage: UNK
     Route: 064
     Dates: end: 201203
  6. PROGRAF [Suspect]
     Dosage: UNK
     Route: 064
  7. IMUREL [Suspect]
     Dosage: UNK
     Route: 064
  8. SECTRAL [Suspect]
     Dosage: UNK
     Route: 064
  9. OMEPRAZOLE [Concomitant]
     Route: 064
  10. CORTANCYL [Concomitant]
     Route: 064
  11. ASPEGIC [Concomitant]
     Route: 064

REACTIONS (3)
  - Maternal exposure during pregnancy [Not Recovered/Not Resolved]
  - Heart disease congenital [Not Recovered/Not Resolved]
  - Pulmonary artery atresia [Recovered/Resolved]
